FAERS Safety Report 7513498-7 (Version None)
Quarter: 2011Q2

REPORT INFORMATION
  Report Type: 
  Country: None (occurrence: None)
  Receive Date: 20110531
  Receipt Date: 20110503
  Transmission Date: 20111010
  Serious: Yes (Hospitalization, Other)
  Sender: FDA-Public Use
  Company Number: US-BAYER-201036989NA

PATIENT
  Age: 50 Year
  Sex: Female
  Weight: 63 kg

DRUGS (6)
  1. LEXAPRO [Concomitant]
     Indication: DEPRESSION
  2. YASMIN [Suspect]
     Indication: OSTEOPOROSIS
  3. LEXAPRO [Concomitant]
     Indication: MOOD ALTERED
     Dosage: 20 MG, UNK
     Dates: start: 20030101
  4. YASMIN [Suspect]
     Indication: BONE MARROW DISORDER
  5. YASMIN [Suspect]
     Indication: CONTRACEPTION
     Dosage: UNK
     Route: 048
     Dates: start: 20040101, end: 20060225
  6. NITROFURANTOIN [Concomitant]
     Indication: URINARY TRACT INFECTION
     Dosage: UNK
     Dates: start: 20040101, end: 20080101

REACTIONS (4)
  - PAIN [None]
  - ANXIETY [None]
  - ANHEDONIA [None]
  - PULMONARY EMBOLISM [None]
